FAERS Safety Report 23230433 (Version 10)
Quarter: 2025Q4

REPORT INFORMATION
  Report Type: Spontaneous
  Country: BR (occurrence: BR)
  Receive Date: 20231127
  Receipt Date: 20251023
  Transmission Date: 20260118
  Serious: Yes (Death, Life-Threatening, Other)
  Sender: SANDOZ
  Company Number: BR-002147023-NVSC2023BR008547

PATIENT
  Age: 37 Year
  Sex: Female

DRUGS (16)
  1. ANASTROZOLE [Suspect]
     Active Substance: ANASTROZOLE
     Dosage: 1 G
     Route: 065
  2. ANASTROZOLE [Suspect]
     Active Substance: ANASTROZOLE
     Indication: Hormone suppression therapy
     Dosage: UNK
     Route: 065
  3. KISQALI [Suspect]
     Active Substance: RIBOCICLIB SUCCINATE
     Dosage: UNK
     Route: 065
  4. KISQALI [Suspect]
     Active Substance: RIBOCICLIB SUCCINATE
     Dosage: 3 DOSAGE FORM, QD
     Route: 065
  5. KISQALI [Suspect]
     Active Substance: RIBOCICLIB SUCCINATE
     Dosage: UNK
     Route: 065
     Dates: start: 202212
  6. KISQALI [Suspect]
     Active Substance: RIBOCICLIB SUCCINATE
     Dosage: UNK
     Route: 065
  7. KISQALI [Suspect]
     Active Substance: RIBOCICLIB SUCCINATE
     Dosage: 3 DF, QD(600 MG, OTHER (TAKE 3 TABLETS 600 MG PER DAY, FOR 21 DAYS)
     Route: 065
  8. KISQALI [Suspect]
     Active Substance: RIBOCICLIB SUCCINATE
     Dosage: 3 DF(3 DOSAGE FORM)
     Route: 065
  9. KISQALI [Suspect]
     Active Substance: RIBOCICLIB SUCCINATE
     Indication: Breast cancer
     Dosage: UNK
     Route: 065
     Dates: start: 20250219
  10. KISQALI [Suspect]
     Active Substance: RIBOCICLIB SUCCINATE
     Dosage: 3 DOSAGE FORM, Q8H (TABLETS)
     Route: 065
  11. KISQALI [Suspect]
     Active Substance: RIBOCICLIB SUCCINATE
     Indication: Breast cancer metastatic
     Dosage: 600 MG, QD (PER DAY, MORNING, AFTERNOON, AND EVENING)
     Route: 048
  12. KISQALI [Suspect]
     Active Substance: RIBOCICLIB SUCCINATE
     Dosage: 3, QD
     Route: 065
  13. KISQALI [Suspect]
     Active Substance: RIBOCICLIB SUCCINATE
     Dosage: UNK
     Route: 065
  14. CAPTOPRIL [Concomitant]
     Active Substance: CAPTOPRIL
     Indication: Hypertension
     Dosage: 50 MG, QDONE IN THE MORNING AND OTHER AT NIGHT
     Route: 065
  15. OMEPRAZOLE [Concomitant]
     Active Substance: OMEPRAZOLE
     Indication: Product used for unknown indication
     Dosage: UNK
     Route: 065
  16. GOSERELIN [Concomitant]
     Active Substance: GOSERELIN
     Indication: Hormone suppression therapy
     Dosage: UNK
     Route: 065

REACTIONS (62)
  - Breast cancer [Fatal]
  - Malignant neoplasm progression [Fatal]
  - Near death experience [Unknown]
  - Blood test abnormal [Unknown]
  - Metastasis [Recovering/Resolving]
  - Noninfective oophoritis [Unknown]
  - Metastases to bone [Recovering/Resolving]
  - Metastases to pelvis [Recovering/Resolving]
  - Liver injury [Unknown]
  - Breast mass [Recovered/Resolved]
  - Mass [Recovering/Resolving]
  - Pelvic pain [Recovering/Resolving]
  - Head injury [Unknown]
  - Pain [Recovered/Resolved]
  - Insomnia [Unknown]
  - Breast pain [Recovered/Resolved]
  - Skin discolouration [Unknown]
  - Foot deformity [Unknown]
  - Contusion [Recovered/Resolved]
  - Abdominal pain [Unknown]
  - Liver disorder [Unknown]
  - Skeletal injury [Unknown]
  - Amenorrhoea [Unknown]
  - Pain [Not Recovered/Not Resolved]
  - Dysphonia [Recovered/Resolved]
  - Muscle spasms [Unknown]
  - Breast pain [Unknown]
  - Blood pressure increased [Recovering/Resolving]
  - Anxiety [Unknown]
  - Spinal pain [Recovering/Resolving]
  - Solar lentigo [Unknown]
  - Fall [Recovering/Resolving]
  - Groin pain [Unknown]
  - Breast swelling [Unknown]
  - Malaise [Recovering/Resolving]
  - Pain in extremity [Unknown]
  - Endometriosis [Unknown]
  - Cytology abnormal [Unknown]
  - Pain in extremity [Recovered/Resolved]
  - Headache [Unknown]
  - Bone pain [Unknown]
  - Asthenia [Not Recovered/Not Resolved]
  - Memory impairment [Unknown]
  - Palpitations [Unknown]
  - Head discomfort [Unknown]
  - Dizziness [Recovering/Resolving]
  - Scratch [Recovered/Resolved]
  - Fatigue [Recovering/Resolving]
  - Pallor [Unknown]
  - Decreased immune responsiveness [Unknown]
  - Decreased appetite [Recovering/Resolving]
  - Viral infection [Unknown]
  - Cough [Unknown]
  - Nasopharyngitis [Unknown]
  - Hepatic lesion [Unknown]
  - Bone lesion [Unknown]
  - Axillary mass [Recovering/Resolving]
  - Drug ineffective [Unknown]
  - Product prescribing error [Not Recovered/Not Resolved]
  - Inappropriate schedule of product administration [Recovered/Resolved]
  - Product distribution issue [Unknown]
  - Product use in unapproved indication [Unknown]

NARRATIVE: CASE EVENT DATE: 20231001
